FAERS Safety Report 15990208 (Version 2)
Quarter: 2019Q1

REPORT INFORMATION
  Report Type: Spontaneous
  Country: RU (occurrence: RU)
  Receive Date: 20190221
  Receipt Date: 20190228
  Transmission Date: 20190418
  Serious: Yes (Death, Life-Threatening, Hospitalization, Other)
  Sender: FDA-Public Use
  Company Number: RU-BAUSCH-BL-2019-005046

PATIENT
  Age: 34 Year
  Sex: Male

DRUGS (14)
  1. ERYTHROMYCIN. [Suspect]
     Active Substance: ERYTHROMYCIN
     Indication: SEPTIC SHOCK
  2. TACROLIMUS. [Concomitant]
     Active Substance: TACROLIMUS
     Indication: GRAFT VERSUS HOST DISEASE IN GASTROINTESTINAL TRACT
     Dates: start: 2016
  3. METOCLOPRAMIDE. [Suspect]
     Active Substance: METOCLOPRAMIDE
     Indication: IMPAIRED GASTRIC EMPTYING
  4. ERYTHROMYCIN. [Suspect]
     Active Substance: ERYTHROMYCIN
     Indication: PERISTALSIS VISIBLE
  5. DORIPENEM. [Concomitant]
     Active Substance: DORIPENEM
     Indication: SEPTIC SHOCK
     Dates: start: 201611
  6. NEOCYTOTECT [Concomitant]
     Indication: SEPTIC SHOCK
     Dates: start: 201611
  7. ERYTHROMYCIN. [Suspect]
     Active Substance: ERYTHROMYCIN
     Indication: IMPAIRED GASTRIC EMPTYING
     Dosage: CONTINUED FOR 12 DAYS
     Route: 065
     Dates: start: 201611, end: 2016
  8. METHYLPREDNISOLONE. [Concomitant]
     Active Substance: METHYLPREDNISOLONE
     Indication: GRAFT VERSUS HOST DISEASE IN GASTROINTESTINAL TRACT
     Dates: start: 20161026
  9. ANIDULAFUNGIN [Concomitant]
     Active Substance: ANIDULAFUNGIN
     Indication: SEPTIC SHOCK
     Dates: start: 201611
  10. METOCLOPRAMIDE. [Suspect]
     Active Substance: METOCLOPRAMIDE
     Indication: SEPTIC SHOCK
     Dosage: CONTINUED FOR 12 DAYS
     Route: 065
     Dates: start: 201611, end: 2016
  11. METOCLOPRAMIDE. [Suspect]
     Active Substance: METOCLOPRAMIDE
     Indication: PERISTALSIS VISIBLE
  12. GANCICLOVIR. [Concomitant]
     Active Substance: GANCICLOVIR
     Indication: SEPTIC SHOCK
     Dates: start: 201611
  13. AMIKACIN. [Concomitant]
     Active Substance: AMIKACIN
     Indication: SEPTIC SHOCK
     Dates: start: 201611
  14. POLYMYXIN B. [Concomitant]
     Active Substance: POLYMYXIN B
     Indication: SEPTIC SHOCK
     Dates: start: 201611

REACTIONS (1)
  - Drug ineffective [Unknown]

NARRATIVE: CASE EVENT DATE: 201611
